FAERS Safety Report 20683475 (Version 1)
Quarter: 2022Q2

REPORT INFORMATION
  Report Type: Report from Study
  Country: US (occurrence: US)
  Receive Date: 20220407
  Receipt Date: 20220407
  Transmission Date: 20220721
  Serious: Yes (Other)
  Sender: FDA-Public Use
  Company Number: US-BAYER-2022A047807

PATIENT

DRUGS (2)
  1. AFRIN [Suspect]
     Active Substance: OXYMETAZOLINE
     Indication: Hypersensitivity
     Dosage: UNK
     Route: 048
  2. AFRIN ORIGINAL NASAL [Suspect]
     Active Substance: OXYMETAZOLINE HYDROCHLORIDE
     Indication: Nasopharyngitis

REACTIONS (2)
  - Drug dependence [Unknown]
  - Rebound nasal congestion [Unknown]
